FAERS Safety Report 23978445 (Version 1)
Quarter: 2024Q2

REPORT INFORMATION
  Report Type: Spontaneous
  Country: IT (occurrence: None)
  Receive Date: 20240614
  Receipt Date: 20240614
  Transmission Date: 20240716
  Serious: Yes (Other)
  Sender: FDA-Public Use
  Company Number: 2024A138394

PATIENT
  Age: 86 Year
  Sex: Female

DRUGS (10)
  1. QUETIAPINE [Suspect]
     Active Substance: QUETIAPINE
     Dosage: 10 TABLETS OF 50 MG EACH
     Route: 048
     Dates: start: 20240304, end: 20240304
  2. VALPROATE SODIUM [Suspect]
     Active Substance: VALPROATE SODIUM
     Dosage: 5 TABLETS OF 300 MG EACH
     Route: 048
     Dates: start: 20240304, end: 20240304
  3. EUTHYROX [Suspect]
     Active Substance: LEVOTHYROXINE SODIUM
     Dosage: 5 TABLETS OF 300 MG EACH
     Route: 048
     Dates: start: 20240304, end: 20240304
  4. GABAPENTIN [Suspect]
     Active Substance: GABAPENTIN
     Dosage: 15 TABLETS OF 300 MG EACH.
     Route: 048
     Dates: start: 20240304, end: 20240304
  5. LASIX [Suspect]
     Active Substance: FUROSEMIDE
     Dosage: 5 TABLETS OF 25 MG EACH.
     Route: 048
     Dates: start: 20240304, end: 20240304
  6. RAMIPRIL [Suspect]
     Active Substance: RAMIPRIL
     Dosage: 5 TABLETS OF 5 MG EACH.
     Route: 048
     Dates: start: 20240304, end: 20240304
  7. SITAGLIPTIN PHOSPHATE [Suspect]
     Active Substance: SITAGLIPTIN PHOSPHATE
     Dosage: 5 TABLETS OF 100 MG EACH
     Route: 048
     Dates: start: 20240304, end: 20240304
  8. BUPRENORPHINE [Concomitant]
     Active Substance: BUPRENORPHINE
  9. CITALOPRAM HYDROBROMIDE [Concomitant]
     Active Substance: CITALOPRAM HYDROBROMIDE
  10. XANAX [Concomitant]
     Active Substance: ALPRAZOLAM

REACTIONS (4)
  - Substance abuse [Recovered/Resolved]
  - Disorientation [Recovering/Resolving]
  - Sopor [Recovered/Resolved]
  - Hypoxia [Unknown]

NARRATIVE: CASE EVENT DATE: 20240304
